FAERS Safety Report 14728174 (Version 4)
Quarter: 2018Q2

REPORT INFORMATION
  Report Type: Spontaneous
  Country: US (occurrence: US)
  Receive Date: 20180406
  Receipt Date: 20180422
  Transmission Date: 20180711
  Serious: Yes (Other)
  Sender: FDA-Public Use
  Company Number: US-APOTEX-2018AP009757

PATIENT
  Age: 57 Year
  Sex: Male

DRUGS (1)
  1. PREDNISOLONE. [Suspect]
     Active Substance: PREDNISOLONE
     Indication: STEROID THERAPY
     Dosage: 7.5 MG, (5 MG IN THE MORNING AND 2.5 MG IN THE EVENING)
     Route: 065

REACTIONS (1)
  - Hepatitis B reactivation [Recovering/Resolving]
